FAERS Safety Report 12389773 (Version 1)
Quarter: 2016Q2

REPORT INFORMATION
  Report Type: Spontaneous
  Country: FR (occurrence: FR)
  Receive Date: 20160520
  Receipt Date: 20160520
  Transmission Date: 20160815
  Serious: Yes (Other)
  Sender: FDA-Public Use
  Company Number: FR-GUERBET LLC-1052547

PATIENT
  Age: 30 Year

DRUGS (1)
  1. DOTAREM [Suspect]
     Active Substance: GADOTERATE MEGLUMINE
     Indication: NUCLEAR MAGNETIC RESONANCE IMAGING ABDOMINAL

REACTIONS (2)
  - Hypersensitivity [Recovered/Resolved]
  - Blood pressure decreased [Recovered/Resolved]
